FAERS Safety Report 12045588 (Version 1)
Quarter: 2016Q1

REPORT INFORMATION
  Report Type: Spontaneous
  Country: FR (occurrence: FR)
  Receive Date: 20160208
  Receipt Date: 20160208
  Transmission Date: 20160526
  Serious: Yes (Hospitalization, Other)
  Sender: FDA-Public Use
  Company Number: FR-UCBSA-2016004151

PATIENT
  Weight: 2 kg

DRUGS (10)
  1. TERCIAN [Suspect]
     Active Substance: CYAMEMAZINE
     Indication: PRODUCT USED FOR UNKNOWN INDICATION
     Dosage: UNK
     Route: 064
     Dates: start: 20150222, end: 20151001
  2. ZOLOFT [Suspect]
     Active Substance: SERTRALINE HYDROCHLORIDE
     Indication: PRODUCT USED FOR UNKNOWN INDICATION
     Dosage: UNK
     Route: 064
     Dates: start: 20150222, end: 20151001
  3. SPECIAFOLDINE [Concomitant]
     Active Substance: FOLIC ACID
     Indication: PRODUCT USED FOR UNKNOWN INDICATION
     Dosage: UNK
     Route: 064
     Dates: end: 20151001
  4. CLAMOXYL [Concomitant]
     Active Substance: AMOXICILLIN\CLAVULANIC ACID
     Indication: PRODUCT USED FOR UNKNOWN INDICATION
     Dosage: UNK
     Route: 064
     Dates: start: 20150930, end: 20151001
  5. TRACTOCILE [Concomitant]
     Active Substance: ATOSIBAN
     Indication: TOCOLYSIS
     Dosage: UNK
     Route: 064
     Dates: start: 20150930, end: 20151001
  6. STILNOX [Suspect]
     Active Substance: ZOLPIDEM TARTRATE
     Indication: PRODUCT USED FOR UNKNOWN INDICATION
     Dosage: UNK
     Route: 064
     Dates: start: 20150222, end: 20151001
  7. KEPPRA [Suspect]
     Active Substance: LEVETIRACETAM
     Indication: IDIOPATHIC GENERALISED EPILEPSY
     Dosage: UNK
     Route: 064
     Dates: start: 20150222, end: 20151001
  8. LAMICTAL [Suspect]
     Active Substance: LAMOTRIGINE
     Indication: PRODUCT USED FOR UNKNOWN INDICATION
     Dosage: UNK
     Route: 064
     Dates: start: 20150222, end: 20151001
  9. QUETIAPINE [Suspect]
     Active Substance: QUETIAPINE
     Indication: PRODUCT USED FOR UNKNOWN INDICATION
     Dosage: UNK
     Route: 064
     Dates: start: 20150222, end: 20151001
  10. SYNTOCINON [Concomitant]
     Active Substance: OXYTOCIN
     Indication: UTERINE CERVIX DILATION PROCEDURE
     Dosage: UNK
     Dates: start: 20151001, end: 20151001

REACTIONS (8)
  - Hypotonia [Unknown]
  - Foetal exposure during pregnancy [Unknown]
  - Respiratory distress [Recovered/Resolved]
  - Premature baby [Recovered/Resolved]
  - Jaundice [Unknown]
  - Hypoglycaemia [Unknown]
  - Foetal heart rate deceleration abnormality [Recovered/Resolved]
  - Neonatal behavioural syndrome [Unknown]

NARRATIVE: CASE EVENT DATE: 20150222
